FAERS Safety Report 6651801-0 (Version None)
Quarter: 2010Q1

REPORT INFORMATION
  Report Type: 
  Country: None (occurrence: None)
  Receive Date: 20100323
  Receipt Date: 20100312
  Transmission Date: 20100710
  Serious: Yes (Other)
  Sender: FDA-Public Use
  Company Number: SPV1-2010-00466

PATIENT
  Age: 46 Year
  Sex: Female
  Weight: 54.4 kg

DRUGS (4)
  1. MEZAVANT (MESALAZINE, MESALAMINE) TABLET [Suspect]
     Indication: COLITIS ULCERATIVE
     Dosage: 3.6, 1X/:QD, 2.4 G, 1X/DAY;QD
     Dates: start: 20100216, end: 20100301
  2. MEZAVANT (MESALAZINE, MESALAMINE) TABLET [Suspect]
     Indication: COLITIS ULCERATIVE
     Dosage: 3.6, 1X/:QD, 2.4 G, 1X/DAY;QD
     Dates: start: 20100301
  3. VITAMIN E /00110501/ (TOCOPHEROL) [Concomitant]
  4. PREDNISONE TAB [Concomitant]

REACTIONS (3)
  - ANGIOEDEMA [None]
  - CHAPPED LIPS [None]
  - LIP DRY [None]
